FAERS Safety Report 6233268-X (Version None)
Quarter: 2009Q2

REPORT INFORMATION
  Report Type: 
  Country: None (occurrence: None)
  Receive Date: 20090617
  Receipt Date: 20090609
  Transmission Date: 20091009
  Serious: Yes (Other)
  Sender: FDA-Public Use
  Company Number: US-CVT-090300

PATIENT

DRUGS (8)
  1. RANEXA [Suspect]
     Indication: ANGINA PECTORIS
     Dosage: 500 MG, BID
     Route: 048
     Dates: start: 20081201, end: 20090514
  2. RANEXA [Suspect]
     Dosage: 500 MG, QD
     Route: 048
     Dates: start: 20081201, end: 20090514
  3. AMIODARONE                         /00133101/ [Suspect]
     Indication: DRUG USE FOR UNKNOWN INDICATION
  4. LOPRESSOR [Concomitant]
     Dosage: 25 MG, BID
  5. LISINOPRIL                         /00894001/ [Concomitant]
     Dosage: 20 MG, QD
  6. IMDUR [Concomitant]
     Dosage: 60 MG, QD
  7. COUMADIN [Concomitant]
     Dosage: 5 MG, UNK
  8. LIPITOR                            /01326101/ [Concomitant]
     Dosage: 40 MG, QD

REACTIONS (3)
  - ABASIA [None]
  - DYSSTASIA [None]
  - MOTOR DYSFUNCTION [None]
